FAERS Safety Report 10467323 (Version 3)
Quarter: 2015Q1

REPORT INFORMATION
  Report Type: Spontaneous
  Country: US (occurrence: US)
  Receive Date: 20140922
  Receipt Date: 20150330
  Transmission Date: 20150720
  Serious: Yes (Hospitalization, Other)
  Sender: FDA-Public Use
  Company Number: US-009507513-1409USA009906

PATIENT
  Sex: Female
  Weight: 126.8 kg

DRUGS (1)
  1. JANUVIA [Suspect]
     Active Substance: SITAGLIPTIN PHOSPHATE
     Indication: TYPE 2 DIABETES MELLITUS
     Dosage: 100 MG, QD
     Route: 048
     Dates: start: 20111015, end: 20121112

REACTIONS (11)
  - Left ventricular hypertrophy [Unknown]
  - Depression [Unknown]
  - Aortic calcification [Unknown]
  - Gastrooesophageal reflux disease [Unknown]
  - Pancreatic neuroendocrine tumour [Unknown]
  - Spinal osteoarthritis [Unknown]
  - Injury [Unknown]
  - Ligament sprain [Unknown]
  - Psoriasis [Unknown]
  - Atelectasis [Unknown]
  - Hepatic steatosis [Unknown]

NARRATIVE: CASE EVENT DATE: 20120604
